FAERS Safety Report 14971240 (Version 1)
Quarter: 2018Q2

REPORT INFORMATION
  Report Type: Spontaneous
  Country: FR (occurrence: FR)
  Receive Date: 20180604
  Receipt Date: 20180604
  Transmission Date: 20180711
  Serious: Yes (Hospitalization)
  Sender: FDA-Public Use
  Company Number: FR-ALLERGAN-1828841US

PATIENT
  Age: 69 Year
  Sex: Female
  Weight: 50.1 kg

DRUGS (2)
  1. RISEDRONATE SODIUM - BP [Suspect]
     Active Substance: RISEDRONATE SODIUM
     Indication: PRODUCT USED FOR UNKNOWN INDICATION
     Dosage: UNK
     Route: 048
  2. UN-ALFA [Suspect]
     Active Substance: ALFACALCIDOL
     Indication: PARATHYROIDECTOMY
     Dosage: 1 DF, QD
     Route: 048
     Dates: start: 2006, end: 20170622

REACTIONS (1)
  - Hypercalcaemia [Recovered/Resolved]

NARRATIVE: CASE EVENT DATE: 20170622
